FAERS Safety Report 6586259 (Version 3)
Quarter: 2015Q4

REPORT INFORMATION
  Report Type: Spontaneous
  Country: AU (occurrence: AU)
  Receive Date: 20080317
  Receipt Date: 20151015
  Transmission Date: 20160305
  Serious: Yes (Hospitalization)
  Sender: FDA-Public Use
  Company Number: AU-PFIZER INC-2008021473

PATIENT
  Age: 35 Year
  Sex: Female

DRUGS (1)
  1. CHAMPIX [Suspect]
     Active Substance: VARENICLINE TARTRATE
     Dosage: 1 MG, DAILY
     Route: 048

REACTIONS (2)
  - Mental disorder [Recovered/Resolved]
  - Suicidal ideation [Recovered/Resolved]
